FAERS Safety Report 8443367-X (Version None)
Quarter: 2012Q2

REPORT INFORMATION
  Report Type: 
  Country: None (occurrence: None)
  Receive Date: 20120618
  Receipt Date: 20120605
  Transmission Date: 20120825
  Serious: Yes (Hospitalization, Other)
  Sender: FDA-Public Use
  Company Number: BE-BIOGENIDEC-2012BI020997

PATIENT
  Age: 57 Year
  Sex: Male

DRUGS (3)
  1. TYSABRI [Suspect]
     Indication: RELAPSING-REMITTING MULTIPLE SCLEROSIS
     Route: 042
     Dates: start: 20101008
  2. PLAVIX [Concomitant]
     Indication: CARDIOMYOPATHY
     Dates: start: 20110501
  3. ASPIRIN [Concomitant]
     Indication: CARDIAC DISORDER
     Dates: start: 20110501

REACTIONS (2)
  - SMALL INTESTINAL HAEMORRHAGE [None]
  - ISCHAEMIC CARDIOMYOPATHY [None]
